FAERS Safety Report 14181378 (Version 1)
Quarter: 2017Q4

REPORT INFORMATION
  Report Type: Spontaneous
  Country: JP (occurrence: JP)
  Receive Date: 20171113
  Receipt Date: 20171113
  Transmission Date: 20180321
  Serious: Yes (Hospitalization)
  Sender: FDA-Public Use
  Company Number: JP-ROCHE-2022847

PATIENT
  Age: 7 Decade

DRUGS (1)
  1. ACTEMRA [Suspect]
     Active Substance: TOCILIZUMAB
     Indication: RHEUMATOID ARTHRITIS
     Dosage: MOST RECENT DOSE IN SEP/2017.
     Route: 065
     Dates: start: 20090929

REACTIONS (1)
  - Cataract [Not Recovered/Not Resolved]
